FAERS Safety Report 5361916-5 (Version None)
Quarter: 2007Q2

REPORT INFORMATION
  Report Type: 
  Country: None (occurrence: None)
  Receive Date: 20070619
  Receipt Date: 20070613
  Transmission Date: 20071010
  Serious: Yes (Other)
  Sender: FDA-Public Use
  Company Number: BR-ABBOTT-07P-020-0371349-00

PATIENT
  Sex: Male

DRUGS (5)
  1. DEPAKENE [Suspect]
     Indication: CONVULSION
  2. CHLORPROMAZINE [Suspect]
     Indication: AGITATION
     Route: 048
     Dates: end: 20050101
  3. CHLORPROMAZINE [Suspect]
     Route: 048
  4. CLOBAZAM [Suspect]
     Indication: CONVULSION
  5. LEVOMEPROMAZINE [Concomitant]
     Indication: DRUG USE FOR UNKNOWN INDICATION

REACTIONS (2)
  - CONVULSION [None]
  - DRUG INEFFECTIVE [None]
